FAERS Safety Report 13303557 (Version 1)
Quarter: 2017Q1

REPORT INFORMATION
  Report Type: Report from Study
  Country: US (occurrence: US)
  Receive Date: 20170307
  Receipt Date: 20170307
  Transmission Date: 20170428
  Serious: Yes (Other)
  Sender: FDA-Public Use
  Company Number: US-ACTELION-A-US2016-140042

PATIENT
  Age: 52 Year
  Sex: Female

DRUGS (16)
  1. IRON [Concomitant]
     Active Substance: IRON
  2. VENLAFAXINE HCL [Concomitant]
     Active Substance: VENLAFAXINE HYDROCHLORIDE
  3. AVASTIN [Concomitant]
     Active Substance: BEVACIZUMAB
  4. ADCIRCA [Concomitant]
     Active Substance: TADALAFIL
  5. ZYRTEC [Concomitant]
     Active Substance: CETIRIZINE HYDROCHLORIDE
  6. VITAMIN C [Concomitant]
     Active Substance: ASCORBIC ACID
  7. UPTRAVI [Suspect]
     Active Substance: SELEXIPAG
     Dosage: UNK
     Route: 048
  8. NOVOLOG [Concomitant]
     Active Substance: INSULIN ASPART
  9. UPTRAVI [Suspect]
     Active Substance: SELEXIPAG
     Dosage: 400 MCG, BID
     Route: 048
     Dates: start: 20160729
  10. CARDIZEM [Concomitant]
     Active Substance: DILTIAZEM HYDROCHLORIDE
  11. COUMADIN [Concomitant]
     Active Substance: WARFARIN SODIUM
  12. PRILOSEC [Concomitant]
     Active Substance: OMEPRAZOLE MAGNESIUM
  13. CALCITRIOL. [Concomitant]
     Active Substance: CALCITRIOL
  14. UPTRAVI [Suspect]
     Active Substance: SELEXIPAG
     Indication: PULMONARY ARTERIAL HYPERTENSION
     Dosage: 600 MCG, BID
     Route: 048
     Dates: start: 20160708
  15. BUMEX [Concomitant]
     Active Substance: BUMETANIDE
  16. SYNTHROID [Concomitant]
     Active Substance: LEVOTHYROXINE SODIUM

REACTIONS (6)
  - Mineral supplementation [Unknown]
  - Transfusion [Unknown]
  - Dyspnoea [Unknown]
  - Myalgia [Unknown]
  - Pain [Recovering/Resolving]
  - Headache [Recovering/Resolving]

NARRATIVE: CASE EVENT DATE: 20160729
